FAERS Safety Report 21484111 (Version 4)
Quarter: 2024Q3

REPORT INFORMATION
  Report Type: Spontaneous
  Country: US (occurrence: US)
  Receive Date: 20221020
  Receipt Date: 20240702
  Transmission Date: 20241016
  Serious: No
  Sender: SANOFI AVENTIS
  Company Number: US-SA-2022SA419973

PATIENT
  Age: 13 Year
  Sex: Male
  Weight: 68.03 kg

DRUGS (3)
  1. CEREZYME [Suspect]
     Active Substance: IMIGLUCERASE
     Indication: Gaucher^s disease
     Dosage: 3200 U, QOW
     Route: 042
     Dates: start: 201810
  2. CEREZYME [Suspect]
     Active Substance: IMIGLUCERASE
     Dosage: 2800 U, QOW
     Route: 042
     Dates: start: 20210908
  3. CEREZYME [Suspect]
     Active Substance: IMIGLUCERASE
     Dosage: 3200 U, QOW
     Route: 042

REACTIONS (1)
  - Weight fluctuation [Unknown]

NARRATIVE: CASE EVENT DATE: 20220101
